FAERS Safety Report 19447948 (Version 1)
Quarter: 2021Q2

REPORT INFORMATION
  Report Type: Spontaneous
  Country: US (occurrence: US)
  Receive Date: 20210622
  Receipt Date: 20210622
  Transmission Date: 20210717
  Serious: No
  Sender: FDA-Public Use
  Company Number: None

PATIENT
  Age: 70 Year
  Sex: Female

DRUGS (1)
  1. ROCKLATAN [Suspect]
     Active Substance: LATANOPROST\NETARSUDIL MESYLATE
     Indication: GLAUCOMA
     Dates: start: 20210417, end: 20210612

REACTIONS (2)
  - Conjunctival haemorrhage [None]
  - Eye haemorrhage [None]

NARRATIVE: CASE EVENT DATE: 20210612
